FAERS Safety Report 25590705 (Version 1)
Quarter: 2025Q3

REPORT INFORMATION
  Report Type: Spontaneous
  Country: US (occurrence: US)
  Receive Date: 20250722
  Receipt Date: 20250722
  Transmission Date: 20251020
  Serious: No
  Sender: CHATTEM
  Company Number: US-OPELLA-2025OHG022251

PATIENT
  Sex: Female

DRUGS (1)
  1. ALLEGRA ALLERGY 24 HOUR [Suspect]
     Active Substance: FEXOFENADINE HYDROCHLORIDE
     Indication: Product used for unknown indication

REACTIONS (2)
  - Expired product administered [Unknown]
  - No adverse event [Unknown]
